FAERS Safety Report 9795601 (Version 1)
Quarter: 2014Q1

REPORT INFORMATION
  Report Type: Spontaneous
  Country: US (occurrence: US)
  Receive Date: 20140103
  Receipt Date: 20140103
  Transmission Date: 20141002
  Serious: Yes (Hospitalization)
  Sender: FDA-Public Use
  Company Number: US-BAYER-2014-000807

PATIENT
  Age: 36 Year
  Sex: Female
  Weight: 59.41 kg

DRUGS (11)
  1. YAZ [Suspect]
  2. LIDOCAINE [Concomitant]
     Dosage: 2 %, UNK
     Dates: start: 20031027
  3. COLACE [Concomitant]
  4. AMBIEN [Concomitant]
  5. MORPHINE [Concomitant]
  6. TORADOL [Concomitant]
  7. ZOFRAN [Concomitant]
  8. PERCOCET [Concomitant]
  9. OXYCODONE [Concomitant]
     Indication: PAIN
  10. OXYCONTIN [Concomitant]
  11. ADVIL [Concomitant]

REACTIONS (1)
  - Pulmonary embolism [Recovered/Resolved]
